FAERS Safety Report 9770615 (Version 1)
Quarter: 2013Q4

REPORT INFORMATION
  Report Type: Report from Study
  Country: CN (occurrence: CN)
  Receive Date: 20131218
  Receipt Date: 20131218
  Transmission Date: 20140711
  Serious: Yes (Hospitalization)
  Sender: FDA-Public Use
  Company Number: CN-BAYER-2013-150849

PATIENT
  Age: 31 Year
  Sex: Female

DRUGS (1)
  1. DIENOGEST 0/2/3/0MG + ESTRADIOL VALERATE 3/2/2/1MG [Suspect]
     Dosage: UNK
     Dates: start: 20130529, end: 20131016

REACTIONS (1)
  - Cholecystitis [Recovered/Resolved]
